FAERS Safety Report 6716846-0 (Version None)
Quarter: 2010Q2

REPORT INFORMATION
  Report Type: 
  Country: None (occurrence: None)
  Receive Date: 20100510
  Receipt Date: 20100505
  Transmission Date: 20101027
  Serious: Yes (Hospitalization)
  Sender: FDA-Public Use
  Company Number: RU-BAYER-201024447GPV

PATIENT
  Age: 48 Year
  Sex: Male
  Weight: 70 kg

DRUGS (3)
  1. SORAFENIB [Suspect]
     Indication: METASTATIC RENAL CELL CARCINOMA
     Route: 048
     Dates: start: 20100105, end: 20100303
  2. SORAFENIB [Suspect]
     Route: 048
     Dates: start: 20091216, end: 20100105
  3. SORBIFER DURULES [Concomitant]
     Indication: ANAEMIA
     Dates: start: 20091215, end: 20100305

REACTIONS (2)
  - COLITIS ULCERATIVE [None]
  - DIARRHOEA [None]
